FAERS Safety Report 24539163 (Version 1)
Quarter: 2024Q4

REPORT INFORMATION
  Report Type: Spontaneous
  Country: US (occurrence: US)
  Receive Date: 20241023
  Receipt Date: 20241023
  Transmission Date: 20250115
  Serious: No
  Sender: GLAXOSMITHKLINE
  Company Number: US-GSKCCFUS-Case-02128715_AE-117412

PATIENT
  Sex: Female

DRUGS (1)
  1. BENLYSTA [Suspect]
     Active Substance: BELIMUMAB
     Indication: Product used for unknown indication
     Dosage: UNK
     Route: 058
     Dates: start: 202405

REACTIONS (4)
  - Exposure via skin contact [Unknown]
  - Wrong technique in device usage process [Unknown]
  - Incorrect dose administered by device [Unknown]
  - Accidental exposure to product [Unknown]
